FAERS Safety Report 7369323-0 (Version None)
Quarter: 2011Q1

REPORT INFORMATION
  Report Type: 
  Country: None (occurrence: None)
  Receive Date: 20110323
  Receipt Date: 20110317
  Transmission Date: 20110831
  Serious: Yes (Other)
  Sender: FDA-Public Use
  Company Number: B0706817A

PATIENT
  Age: 49 Year
  Sex: Male

DRUGS (3)
  1. DEROXAT [Suspect]
     Indication: DEPRESSION
     Route: 048
     Dates: start: 20110101
  2. TERCIAN [Suspect]
     Route: 065
     Dates: start: 20110301, end: 20110315
  3. RIVOTRIL [Suspect]
     Route: 065
     Dates: start: 20110301

REACTIONS (1)
  - NEUTROPENIA [None]
